FAERS Safety Report 23609643 (Version 1)
Quarter: 2024Q1

REPORT INFORMATION
  Report Type: Spontaneous
  Country: GB (occurrence: GB)
  Receive Date: 20240308
  Receipt Date: 20240308
  Transmission Date: 20240410
  Serious: Yes (Other)
  Sender: FDA-Public Use
  Company Number: None

PATIENT
  Age: 20 Year
  Sex: Female
  Weight: 62 kg

DRUGS (3)
  1. DOXYCYCLINE [Suspect]
     Active Substance: DOXYCYCLINE
     Dosage: , TAKE FOOD. PRESCRIBED AND MONITORED BY COMMUN...
     Route: 065
     Dates: start: 20231206
  2. OTOMIZE [Concomitant]
     Dosage: ONE SPRAY INTO THE AFFECTED EAR(S) THREE TIMES ..., DURATION: 7 DAYS
     Dates: start: 20231218, end: 20231225
  3. ADAPALENE [Concomitant]
     Active Substance: ADAPALENE
     Dosage: APPLY ONCE DAILY IN THE EVENING FOR ACNE, USE SPARINGLY, UNDER COMMUNITY DERMATOLOGY
     Dates: start: 20240228

REACTIONS (4)
  - Oesophageal ulcer [Unknown]
  - Dysphagia [Recovered/Resolved]
  - Chest pain [Recovered/Resolved]
  - Oesophageal pain [Recovered/Resolved]
